FAERS Safety Report 18198902 (Version 2)
Quarter: 2020Q3

REPORT INFORMATION
  Report Type: Spontaneous
  Country: FR (occurrence: FR)
  Receive Date: 20200826
  Receipt Date: 20200908
  Transmission Date: 20201103
  Serious: Yes (Hospitalization, Other)
  Sender: FDA-Public Use
  Company Number: FR-AMGEN-FRASP2020134920

PATIENT
  Age: 64 Year
  Sex: Female

DRUGS (3)
  1. VITAMIN D [COLECALCIFEROL] [Concomitant]
     Active Substance: CHOLECALCIFEROL
     Dosage: 800 INTERNATIONAL UNIT, QD
  2. PROLIA [Suspect]
     Active Substance: DENOSUMAB
     Indication: OSTEOPOROSIS POSTMENOPAUSAL
     Dosage: 60 MILLIGRAM, Q6MO
     Route: 058
     Dates: start: 200501
  3. CALCIUM [Concomitant]
     Active Substance: CALCIUM
     Dosage: 1000 MILLIGRAM, QD

REACTIONS (13)
  - Hyperplasia [Unknown]
  - Blood creatinine decreased [Unknown]
  - Rib fracture [Unknown]
  - Hypercalciuria [Unknown]
  - Rebound effect [Not Recovered/Not Resolved]
  - Vitamin D deficiency [Recovered/Resolved]
  - N-telopeptide urine abnormal [Unknown]
  - Thyroid neoplasm [Unknown]
  - Thoracic vertebral fracture [Unknown]
  - Bone loss [Unknown]
  - Goitre [Unknown]
  - Papillary thyroid cancer [Unknown]
  - Hypercalcaemia [Recovered/Resolved]

NARRATIVE: CASE EVENT DATE: 2014
